FAERS Safety Report 9912946 (Version 1)
Quarter: 2014Q1

REPORT INFORMATION
  Report Type: Spontaneous
  Country: CH (occurrence: CH)
  Receive Date: 20140220
  Receipt Date: 20140220
  Transmission Date: 20141002
  Serious: Yes (Life-Threatening, Other)
  Sender: FDA-Public Use
  Company Number: CH-JNJFOC-20140203183

PATIENT
  Age: 94 Year
  Sex: Female

DRUGS (10)
  1. HALDOL [Suspect]
     Indication: RESTLESSNESS
     Dosage: 2 DROPS-2 DROPS-2 DROPS
     Route: 048
  2. HALDOL [Suspect]
     Indication: RESTLESSNESS
     Dosage: 2 DROPS-2 DROPS-2 DROPS
     Route: 048
     Dates: start: 20140117
  3. SEROQUEL [Interacting]
     Indication: RESTLESSNESS
     Route: 048
     Dates: end: 20140117
  4. SEROQUEL [Interacting]
     Indication: RESTLESSNESS
     Route: 048
     Dates: start: 20140117, end: 20140119
  5. TORASEM [Suspect]
     Indication: PRODUCT USED FOR UNKNOWN INDICATION
     Route: 048
  6. COVERSUM [Suspect]
     Indication: PRODUCT USED FOR UNKNOWN INDICATION
     Route: 048
  7. VI-DE 3 [Concomitant]
     Route: 048
  8. BETAHISTIN [Concomitant]
     Route: 048
  9. ESOMEPRAZOLE MAGNESIUM [Concomitant]
     Route: 048
  10. TEMESTA [Concomitant]
     Route: 060

REACTIONS (4)
  - Drug interaction [Unknown]
  - Hypotension [Recovering/Resolving]
  - Somnolence [Recovered/Resolved]
  - Fall [Recovered/Resolved]
